FAERS Safety Report 7361600-2 (Version None)
Quarter: 2011Q1

REPORT INFORMATION
  Report Type: 
  Country: None (occurrence: None)
  Receive Date: 20110309
  Receipt Date: 20110221
  Transmission Date: 20110831
  Serious: Yes (Hospitalization)
  Sender: FDA-Public Use
  Company Number: 2011MA001602

PATIENT
  Age: 38 Year
  Sex: Female

DRUGS (8)
  1. ZIPRASIDONE HCL [Concomitant]
  2. LEVOTHYROXINE [Concomitant]
  3. BUPROPION HYDROCHLORIDE [Concomitant]
  4. COGENTIN [Suspect]
  5. VALPROATE SODIUM [Concomitant]
  6. VALPROATE SODIUM [Concomitant]
  7. PROPRANOLOL [Concomitant]
  8. HALOPERIDOL [Concomitant]

REACTIONS (3)
  - ANTICHOLINERGIC SYNDROME [None]
  - TOXICITY TO VARIOUS AGENTS [None]
  - MENTAL DISORDER [None]
